FAERS Safety Report 7231050-8 (Version None)
Quarter: 2011Q1

REPORT INFORMATION
  Report Type: 
  Country: None (occurrence: None)
  Receive Date: 20110118
  Receipt Date: 20110114
  Transmission Date: 20110831
  Serious: Yes (Death, Life-Threatening)
  Sender: FDA-Public Use
  Company Number: US-BAXTER-2011BH001207

PATIENT
  Age: 58 Year
  Sex: Female
  Weight: 45 kg

DRUGS (31)
  1. TIOTROPIUM BROMIDE [Concomitant]
     Indication: ASTHMA
     Route: 055
     Dates: start: 20060713
  2. REGLAN [Concomitant]
     Indication: GASTROOESOPHAGEAL REFLUX DISEASE
     Route: 048
     Dates: start: 20050620
  3. ACEBUTOLOL [Concomitant]
     Indication: HYPERTENSION
     Route: 048
     Dates: start: 20000403
  4. PROMETHAZINE HYDROCHLORIDE [Concomitant]
     Indication: NAUSEA
     Route: 048
     Dates: start: 20060802
  5. PAXIL [Concomitant]
     Indication: DEPRESSION
     Route: 048
     Dates: start: 20100329
  6. ALLEGRA-D                          /01367401/ [Concomitant]
     Indication: RHINITIS ALLERGIC
     Route: 048
     Dates: start: 20080609
  7. CARAFATE [Concomitant]
     Indication: GASTRIC ULCER
     Route: 048
     Dates: start: 20100601
  8. MIDRIN [Concomitant]
     Indication: MIGRAINE
     Route: 048
     Dates: start: 20080414
  9. SEROQUEL [Concomitant]
     Indication: INSOMNIA
     Route: 048
     Dates: start: 20100601
  10. SYNTHROID [Concomitant]
     Indication: HYPOTHYROIDISM
     Route: 048
     Dates: start: 20060501
  11. ESTRADIOL [Concomitant]
     Indication: POSTMENOPAUSE
     Route: 062
     Dates: start: 20040823
  12. RHUPH20 [Suspect]
     Indication: PRIMARY IMMUNODEFICIENCY SYNDROME
     Route: 058
     Dates: start: 20101227, end: 20101227
  13. VENTOLIN [Concomitant]
     Indication: ASTHMA
     Route: 055
     Dates: start: 20010814
  14. HYDROXYZINE [Concomitant]
     Indication: ANXIETY
     Route: 048
     Dates: start: 20040823
  15. OMEPRAZOLE [Concomitant]
     Indication: GASTROOESOPHAGEAL REFLUX DISEASE
     Route: 048
     Dates: start: 20090119
  16. VITAMIN D [Concomitant]
     Indication: ROUTINE HEALTH MAINTENANCE
     Route: 048
     Dates: start: 20091207
  17. IMMUNE GLOBULIN NOS [Suspect]
     Indication: PRIMARY IMMUNODEFICIENCY SYNDROME
     Route: 058
     Dates: start: 20101227, end: 20101227
  18. RHUPH20 [Suspect]
     Route: 058
     Dates: start: 20101227, end: 20101227
  19. XOPENEX [Concomitant]
     Indication: ASTHMA
     Route: 055
     Dates: start: 20050919
  20. CHLORDIAZEPOXIDE W/CLIDINIUM BROMIDE [Concomitant]
     Indication: GASTRIC ULCER
     Route: 048
     Dates: start: 20060322
  21. VYVANSE [Concomitant]
     Indication: ATTENTION DEFICIT/HYPERACTIVITY DISORDER
     Route: 048
     Dates: start: 20100419
  22. VITAMIN E [Concomitant]
     Indication: ROUTINE HEALTH MAINTENANCE
     Route: 048
     Dates: start: 20031029
  23. DIPROLENE [Concomitant]
     Indication: DERMATITIS CONTACT
     Route: 061
     Dates: start: 20100526
  24. TRINSICON [Concomitant]
     Indication: ROUTINE HEALTH MAINTENANCE
     Route: 048
     Dates: start: 20050620
  25. EPIPEN [Concomitant]
     Indication: PROPHYLAXIS
     Route: 030
     Dates: start: 20050103
  26. FLUTICASONE PROPIONATE [Concomitant]
     Indication: RHINITIS ALLERGIC
     Route: 055
     Dates: start: 20071210
  27. ZYRTEC [Concomitant]
     Indication: RHINITIS ALLERGIC
     Route: 048
     Dates: start: 20080401
  28. ASMANEX TWISTHALER [Concomitant]
     Indication: ASTHMA
     Route: 055
     Dates: start: 20060713
  29. PHENERGAN [Concomitant]
     Indication: NAUSEA
     Route: 054
     Dates: start: 20040823
  30. PERIACTIN [Concomitant]
     Indication: DECREASED APPETITE
     Route: 048
     Dates: start: 20101116
  31. CATAPRES /USA/ [Concomitant]
     Indication: ATTENTION DEFICIT/HYPERACTIVITY DISORDER
     Dates: start: 20090403

REACTIONS (1)
  - DEATH [None]
